FAERS Safety Report 19978470 (Version 1)
Quarter: 2021Q4

REPORT INFORMATION
  Report Type: Spontaneous
  Country: US (occurrence: US)
  Receive Date: 20211019
  Receipt Date: 20211019
  Transmission Date: 20220303
  Serious: No
  Sender: FDA-Public Use
  Company Number: None

PATIENT
  Age: 61 Year
  Sex: Female

DRUGS (1)
  1. COSENTYX [Suspect]
     Active Substance: SECUKINUMAB
     Indication: Ankylosing spondylitis
     Dosage: ?          OTHER FREQUENCY:DAY 28, THEN EVERY;
     Route: 058
     Dates: start: 202109

REACTIONS (2)
  - Cystitis [None]
  - Diarrhoea [None]
